FAERS Safety Report 9349029 (Version 3)
Quarter: 2013Q3

REPORT INFORMATION
  Report Type: Spontaneous
  Country: US (occurrence: US)
  Receive Date: 20130614
  Receipt Date: 20130731
  Transmission Date: 20140515
  Serious: Yes (Other)
  Sender: FDA-Public Use
  Company Number: US-JNJFOC-20130603261

PATIENT
  Age: 77 Year
  Sex: Female
  Weight: 72.58 kg

DRUGS (10)
  1. XARELTO [Suspect]
     Indication: CEREBROVASCULAR ACCIDENT PROPHYLAXIS
     Route: 048
     Dates: start: 20121101
  2. XARELTO [Suspect]
     Indication: ATRIAL FIBRILLATION
     Route: 048
     Dates: start: 20121101
  3. FLECAINIDE [Concomitant]
     Indication: CARDIAC DISORDER
     Dosage: HALF TABLET TWICE DAILY
     Route: 048
  4. LIPITOR [Concomitant]
     Indication: BLOOD CHOLESTEROL INCREASED
     Route: 048
  5. OXYBUTYNIN [Concomitant]
     Indication: URINARY INCONTINENCE
     Route: 048
  6. TRAZODONE [Concomitant]
     Indication: CEREBROVASCULAR ACCIDENT
     Route: 048
  7. LYRICA [Concomitant]
     Indication: NEURALGIA
     Route: 048
  8. TOPIRAMATE [Concomitant]
     Indication: CEREBROVASCULAR ACCIDENT
     Route: 048
  9. VITAMIN D [Concomitant]
     Indication: PRODUCT USED FOR UNKNOWN INDICATION
     Route: 065
  10. VITAMIN C [Concomitant]
     Indication: PRODUCT USED FOR UNKNOWN INDICATION
     Route: 065

REACTIONS (2)
  - Blood urine present [Recovering/Resolving]
  - Inappropriate schedule of drug administration [Not Recovered/Not Resolved]
